FAERS Safety Report 10719291 (Version 2)
Quarter: 2015Q1

REPORT INFORMATION
  Report Type: Spontaneous
  Country: US (occurrence: US)
  Receive Date: 20150119
  Receipt Date: 20150119
  Transmission Date: 20150721
  Serious: No
  Sender: FDA-Public Use
  Company Number: US-UNITED THERAPEUTICS-UNT-2014-003671

PATIENT
  Age: 66 Year
  Sex: Male
  Weight: 108.84 kg

DRUGS (2)
  1. LETAIRIS [Concomitant]
     Active Substance: AMBRISENTAN
     Indication: PRODUCT USED FOR UNKNOWN INDICATION
  2. REMODULIN [Suspect]
     Active Substance: TREPROSTINIL
     Indication: PULMONARY ARTERIAL HYPERTENSION
     Dosage: 0.05 ?G/KG/MIN, CONTINUING
     Route: 058
     Dates: start: 20130205

REACTIONS (4)
  - Skin discolouration [Recovering/Resolving]
  - Drug dose omission [Unknown]
  - Medical device complication [Unknown]
  - Lip discolouration [Recovering/Resolving]

NARRATIVE: CASE EVENT DATE: 20140705
